FAERS Safety Report 7828288-5 (Version None)
Quarter: 2011Q4

REPORT INFORMATION
  Report Type: 
  Country: None (occurrence: None)
  Receive Date: 20111020
  Receipt Date: 20111016
  Transmission Date: 20120403
  Serious: No
  Sender: FDA-Public Use
  Company Number: US-PFIZER INC-2011247279

PATIENT
  Sex: Male
  Weight: 77.098 kg

DRUGS (1)
  1. IBUPROFEN (ADVIL) [Suspect]
     Indication: TOOTHACHE
     Dosage: 2 CAPSULES, UNK
     Route: 048
     Dates: start: 20111016

REACTIONS (3)
  - RASH [None]
  - HYPERSENSITIVITY [None]
  - SWELLING FACE [None]
